FAERS Safety Report 23410892 (Version 1)
Quarter: 2024Q1

REPORT INFORMATION
  Report Type: Spontaneous
  Country: US (occurrence: None)
  Receive Date: 20240116
  Receipt Date: 20240116
  Transmission Date: 20240410
  Serious: Yes (Death)
  Sender: FDA-Public Use
  Company Number: None

PATIENT
  Age: 61 Year
  Sex: Female

DRUGS (5)
  1. XALKORI [Suspect]
     Active Substance: CRIZOTINIB
     Indication: Non-small cell lung cancer
     Dosage: 250 MG ORAL?? DIRECTIONS: TK 1 C PO BID?
     Route: 048
     Dates: start: 20230112
  2. ATORVASTATIN [Concomitant]
     Active Substance: ATORVASTATIN
  3. CLONIDINE [Concomitant]
     Active Substance: CLONIDINE
  4. INSULIN GLARG SOLOSTAR PEN [Concomitant]
  5. NICOTINE TRANSDERMAL SYSTEM [Concomitant]
     Active Substance: NICOTINE

REACTIONS (1)
  - Death [None]

NARRATIVE: CASE EVENT DATE: 20240114
